FAERS Safety Report 23415090 (Version 1)
Quarter: 2024Q1

REPORT INFORMATION
  Report Type: Spontaneous
  Country: US (occurrence: US)
  Receive Date: 20240118
  Receipt Date: 20240118
  Transmission Date: 20240410
  Serious: No
  Sender: FDA-Public Use
  Company Number: US-JNJFOC-20240106332

PATIENT
  Age: 88 Year
  Sex: Male
  Weight: 77.18 kg

DRUGS (1)
  1. DARZALEX FASPRO [Suspect]
     Active Substance: DARATUMUMAB\HYALURONIDASE-FIHJ
     Indication: Plasma cell myeloma
     Route: 058
     Dates: start: 20210622, end: 20231003

REACTIONS (3)
  - Illness [Unknown]
  - Weight decreased [Unknown]
  - COVID-19 [Unknown]
